FAERS Safety Report 7006386-6 (Version None)
Quarter: 2010Q3

REPORT INFORMATION
  Report Type: 
  Country: None (occurrence: None)
  Receive Date: 20100921
  Receipt Date: 20100908
  Transmission Date: 20110219
  Serious: Yes (Hospitalization)
  Sender: FDA-Public Use
  Company Number: DE-GENENTECH-306498

PATIENT
  Sex: Male
  Weight: 90 kg

DRUGS (5)
  1. RITUXIMAB [Suspect]
     Indication: NON-HODGKIN'S LYMPHOMA
     Dosage: 750 MG, UNK
     Route: 042
     Dates: start: 20100223
  2. BENDAMUSTINE [Suspect]
     Indication: NON-HODGKIN'S LYMPHOMA
     Dosage: 180 MG, UNK
     Route: 042
     Dates: start: 20100224
  3. ATORVASTATIN CALCIUM [Concomitant]
     Indication: PRODUCT USED FOR UNKNOWN INDICATION
     Dosage: 1 DF, UNK
  4. EZETIMIBE [Concomitant]
     Indication: PRODUCT USED FOR UNKNOWN INDICATION
     Dosage: 1 DF, UNK
  5. OLMESARTAN MEDOXOMIL [Concomitant]
     Indication: PRODUCT USED FOR UNKNOWN INDICATION
     Dosage: 1 DF, UNK

REACTIONS (2)
  - PULMONARY EMBOLISM [None]
  - VENOUS THROMBOSIS [None]
